FAERS Safety Report 7595751-4 (Version None)
Quarter: 2011Q3

REPORT INFORMATION
  Report Type: 
  Country: None (occurrence: None)
  Receive Date: 20110707
  Receipt Date: 20110702
  Transmission Date: 20111222
  Serious: Yes (Hospitalization)
  Sender: FDA-Public Use
  Company Number: US-PFIZER INC-2011148210

PATIENT
  Sex: Male

DRUGS (3)
  1. SUNITINIB MALATE [Suspect]
     Indication: BLADDER CANCER
     Dosage: UNK
     Dates: start: 20090604, end: 20090804
  2. CISPLATIN [Suspect]
     Indication: BLADDER CANCER
     Dosage: UNK
     Dates: start: 20090604, end: 20090804
  3. GEMCITABINE HCL [Suspect]
     Indication: BLADDER CANCER
     Dosage: UNK
     Dates: start: 20090604, end: 20090804

REACTIONS (2)
  - CELLULITIS [None]
  - PYREXIA [None]
